FAERS Safety Report 8903502 (Version 1)
Quarter: 2012Q4

REPORT INFORMATION
  Report Type: 
  Country: NL (occurrence: NL)
  Receive Date: 20121113
  Receipt Date: 20121113
  Transmission Date: 20130627
  Serious: Yes (Hospitalization)
  Sender: FDA-Public Use
  Company Number: NL-AMGEN-NLDCT2012071505

PATIENT
  Age: 67 Year
  Sex: Male
  Weight: 88 kg

DRUGS (6)
  1. PEGFILGRASTIM [Suspect]
     Indication: MALIGNANT LYMPHOID NEOPLASM
     Dosage: 6 mg, UNK
     Route: 058
     Dates: start: 20120622
  2. PREDNISOLONE [Concomitant]
     Indication: MALIGNANT LYMPHOID NEOPLASM
     Dosage: 100 mg, UNK
     Route: 048
     Dates: start: 20120601
  3. DOXORUBICIN [Concomitant]
     Indication: MALIGNANT LYMPHOID NEOPLASM
     Dosage: 106 mg, UNK
     Route: 042
     Dates: start: 20120621
  4. CYCLOPHOSPHAMIDE [Concomitant]
     Indication: MALIGNANT LYMPHOID NEOPLASM
     Dosage: 1580 mg, UNK
     Route: 042
     Dates: start: 20120621
  5. VINCRISTINE [Concomitant]
     Indication: MALIGNANT LYMPHOID NEOPLASM
     Dosage: 1 mg, UNK
     Route: 042
     Dates: start: 20120621
  6. SODIUM [Concomitant]
     Dosage: 2.5 %, UNK

REACTIONS (1)
  - Fatigue [Recovered/Resolved]
